FAERS Safety Report 7542239-2 (Version None)
Quarter: 2011Q2

REPORT INFORMATION
  Report Type: 
  Country: None (occurrence: None)
  Receive Date: 20110613
  Receipt Date: 20110606
  Transmission Date: 20111010
  Serious: Yes (Other)
  Sender: FDA-Public Use
  Company Number: DE-PFIZER INC-2011122873

PATIENT
  Sex: Female

DRUGS (1)
  1. ZITHROMAX [Suspect]
     Indication: ACUTE SINUSITIS
     Dosage: 250 MG, 1X/DAY
     Dates: start: 20110530, end: 20110602

REACTIONS (1)
  - OSTEITIS [None]
